FAERS Safety Report 7480068-9 (Version None)
Quarter: 2011Q2

REPORT INFORMATION
  Report Type: 
  Country: None (occurrence: None)
  Receive Date: 20110516
  Receipt Date: 20110505
  Transmission Date: 20111010
  Serious: No
  Sender: FDA-Public Use
  Company Number: US-BIOGENIDEC-2011BI011482

PATIENT
  Sex: Female

DRUGS (1)
  1. TYSABRI [Suspect]
     Indication: MULTIPLE SCLEROSIS
     Route: 042
     Dates: start: 20071029, end: 20110218

REACTIONS (7)
  - AGRAPHIA [None]
  - DRUG INEFFECTIVE [None]
  - ABASIA [None]
  - MOBILITY DECREASED [None]
  - TREMOR [None]
  - SOMNOLENCE [None]
  - MULTIPLE SCLEROSIS [None]
